FAERS Safety Report 21980143 (Version 1)
Quarter: 2023Q1

REPORT INFORMATION
  Report Type: Spontaneous
  Country: FR (occurrence: FR)
  Receive Date: 20230210
  Receipt Date: 20230210
  Transmission Date: 20230418
  Serious: Yes (Other)
  Sender: FDA-Public Use
  Company Number: None

PATIENT
  Age: 56 Year
  Sex: Female

DRUGS (3)
  1. FLUOXETINE HYDROCHLORIDE [Suspect]
     Active Substance: FLUOXETINE HYDROCHLORIDE
     Indication: Depression
     Route: 048
     Dates: start: 202009, end: 20230113
  2. CYANOCOBALAMIN [Suspect]
     Active Substance: CYANOCOBALAMIN
     Indication: Pernicious anaemia
     Dosage: 1 DOSAGE FORM, MONTHLY (1/M)
     Route: 030
  3. ALPRAZOLAM [Suspect]
     Active Substance: ALPRAZOLAM
     Indication: Anxiety
     Dosage: 0.25 MG, DAILY
     Route: 048
     Dates: start: 202009

REACTIONS (3)
  - Pulmonary mass [Not Recovered/Not Resolved]
  - Lung opacity [Not Recovered/Not Resolved]
  - Pulmonary granuloma [Not Recovered/Not Resolved]

NARRATIVE: CASE EVENT DATE: 20211020
